FAERS Safety Report 24716002 (Version 1)
Quarter: 2024Q4

REPORT INFORMATION
  Report Type: Spontaneous
  Country: NO (occurrence: NO)
  Receive Date: 20241210
  Receipt Date: 20241210
  Transmission Date: 20250114
  Serious: Yes (Hospitalization)
  Sender: NOVARTIS
  Company Number: None

PATIENT
  Age: 35 Year
  Sex: Female

DRUGS (4)
  1. GLYCOPYRRONIUM [Suspect]
     Active Substance: GLYCOPYRRONIUM
     Indication: Mucolytic treatment
     Dosage: 0.2 MG, TOTAL
     Route: 065
  2. PROPOFOL [Suspect]
     Active Substance: PROPOFOL
     Indication: Anaesthesia procedure
     Dosage: 100 MG, TOTAL
     Route: 065
  3. ALFENTANIL [Suspect]
     Active Substance: ALFENTANIL
     Indication: Anaesthesia procedure
     Dosage: 1 MG, TOTAL
     Route: 065
  4. SUCCINYLCHOLINE [Suspect]
     Active Substance: SUCCINYLCHOLINE\SUCCINYLCHOLINE CHLORIDE
     Indication: Anaesthesia procedure
     Dosage: 50 MG, TOTAL
     Route: 065

REACTIONS (3)
  - Dyspnoea [Recovering/Resolving]
  - Oxygen saturation decreased [Recovering/Resolving]
  - Cough [Recovering/Resolving]
